FAERS Safety Report 23540829 (Version 4)
Quarter: 2024Q2

REPORT INFORMATION
  Report Type: Report from Study
  Country: US (occurrence: US)
  Receive Date: 20240219
  Receipt Date: 20240606
  Transmission Date: 20240716
  Serious: No
  Sender: FDA-Public Use
  Company Number: US-AstraZeneca-CH-00565952A

PATIENT
  Age: 72 Year
  Sex: Male

DRUGS (1)
  1. STRENSIQ [Suspect]
     Active Substance: ASFOTASE ALFA
     Indication: Hypophosphatasia
     Dosage: UNK
     Route: 058

REACTIONS (4)
  - Fatigue [Recovered/Resolved]
  - Laziness [Unknown]
  - Somnolence [Recovered/Resolved]
  - Injection site pain [Unknown]

NARRATIVE: CASE EVENT DATE: 20240212
